FAERS Safety Report 26126379 (Version 2)
Quarter: 2025Q4

REPORT INFORMATION
  Report Type: Spontaneous
  Country: KR (occurrence: KR)
  Receive Date: 20251205
  Receipt Date: 20251214
  Transmission Date: 20260118
  Serious: Yes (Death, Hospitalization, Other)
  Sender: PFIZER
  Company Number: KR-PFIZER INC-PV202500142134

PATIENT
  Age: 82 Year
  Sex: Male

DRUGS (2)
  1. BEVACIZUMAB [Suspect]
     Active Substance: BEVACIZUMAB
     Indication: Hepatocellular carcinoma
     Dosage: UNK
  2. ATEZOLIZUMAB [Suspect]
     Active Substance: ATEZOLIZUMAB
     Indication: Hepatocellular carcinoma
     Dosage: UNK

REACTIONS (3)
  - Pneumonitis [Fatal]
  - Acute respiratory distress syndrome [Fatal]
  - Off label use [Unknown]
